FAERS Safety Report 5642235-6 (Version None)
Quarter: 2008Q1

REPORT INFORMATION
  Report Type: 
  Country: None (occurrence: None)
  Receive Date: 20080225
  Receipt Date: 20080218
  Transmission Date: 20080703
  Serious: Yes (Other)
  Sender: FDA-Public Use
  Company Number: A0710485A

PATIENT
  Age: 70 Year
  Sex: Female

DRUGS (3)
  1. CALCIUM CARBONATE (FORMULATION UNKNOWN) WINTERGREEN (CALCIUM CARBONATE [Suspect]
     Indication: DRUG USE FOR UNKNOWN INDICATION
     Dosage: ORAL
     Route: 048
  2. CALCIUM CARBONATE (FORMULATION UNKNOWN) PEPPERMINT (CALCIUM CARBONATE) [Suspect]
     Indication: DRUG USE FOR UNKNOWN INDICATION
     Dosage: ORAL
     Route: 048
  3. CALCIUM CARBONATE (FORMULATION UNKNOWN) ASSORTED BERRIES (CALCIUM CARB [Suspect]
     Indication: DRUG USE FOR UNKNOWN INDICATION
     Dosage: ORAL
     Route: 048

REACTIONS (2)
  - ASTHMA [None]
  - STOMACH DISCOMFORT [None]
